FAERS Safety Report 8203461-5 (Version None)
Quarter: 2012Q1

REPORT INFORMATION
  Report Type: 
  Country: None (occurrence: None)
  Receive Date: 20120313
  Receipt Date: 20120305
  Transmission Date: 20120608
  Serious: Yes (Hospitalization)
  Sender: FDA-Public Use
  Company Number: US-BIOGENIDEC-2011BI037872

PATIENT
  Age: 56 Year
  Sex: Female

DRUGS (6)
  1. MULTIPLE INJECTIONS FOR MS (NOS) [Concomitant]
     Indication: MULTIPLE SCLEROSIS
  2. OXYBUTYNIN [Concomitant]
  3. VITAMIN D [Concomitant]
  4. BACLOFEN [Concomitant]
  5. CALCIUM [Concomitant]
  6. TYSABRI [Suspect]
     Indication: MULTIPLE SCLEROSIS
     Route: 042
     Dates: start: 20100827, end: 20110826

REACTIONS (8)
  - BALANCE DISORDER [None]
  - CHRONIC OBSTRUCTIVE PULMONARY DISEASE [None]
  - PUBIS FRACTURE [None]
  - FRACTURED SACRUM [None]
  - KLEBSIELLA INFECTION [None]
  - PNEUMONIA [None]
  - FALL [None]
  - BONE DISORDER [None]
